FAERS Safety Report 14909822 (Version 2)
Quarter: 2018Q2

REPORT INFORMATION
  Report Type: Spontaneous
  Country: AT (occurrence: AT)
  Receive Date: 20180517
  Receipt Date: 20180525
  Transmission Date: 20180711
  Serious: Yes (Other)
  Sender: FDA-Public Use
  Company Number: CH-AMGEN-CHESP2018064664

PATIENT
  Age: 37 Year
  Sex: Female

DRUGS (8)
  1. PERJETA [Concomitant]
     Active Substance: PERTUZUMAB
     Dosage: UNK, 6 TIMES
     Dates: start: 20170914
  2. CHLORHEXIDIN [Concomitant]
     Active Substance: CHLORHEXIDINE
     Indication: TOOTH EXTRACTION
     Dosage: UNK
  3. XGEVA [Suspect]
     Active Substance: DENOSUMAB
     Indication: PRODUCT USED FOR UNKNOWN INDICATION
     Dosage: UNK UNK, Q4WK
     Route: 065
     Dates: start: 20170916
  4. OSPAMOX [Concomitant]
     Active Substance: AMOXICILLIN
     Indication: TOOTH EXTRACTION
  5. VINORELBINE [Concomitant]
     Active Substance: VINORELBINE\VINORELBINE TARTRATE
     Dosage: 40 MG, UNK
  6. OSPAMOX [Concomitant]
     Active Substance: AMOXICILLIN
     Indication: INFECTION
     Dosage: UNK
  7. HERCEPTIN [Concomitant]
     Active Substance: TRASTUZUMAB
     Dosage: UNK
  8. CHLORHEXIDIN [Concomitant]
     Active Substance: CHLORHEXIDINE
     Indication: EXPOSED BONE IN JAW

REACTIONS (7)
  - Exposed bone in jaw [Unknown]
  - Fistula [Not Recovered/Not Resolved]
  - Mucosal haemorrhage [Unknown]
  - Mucosal infection [Unknown]
  - Throat lesion [Recovered/Resolved]
  - Nasopharyngitis [Recovered/Resolved]
  - Oedema mucosal [Unknown]

NARRATIVE: CASE EVENT DATE: 201711
